FAERS Safety Report 26026730 (Version 1)
Quarter: 2025Q4

REPORT INFORMATION
  Report Type: Spontaneous
  Country: CN (occurrence: CN)
  Receive Date: 20251111
  Receipt Date: 20251111
  Transmission Date: 20260117
  Serious: Yes (Hospitalization, Other)
  Sender: SLATE RUN
  Company Number: CN-SLATERUN-2025SRLIT00216

PATIENT
  Age: 83 Year
  Sex: Male

DRUGS (2)
  1. FLUCONAZOLE [Suspect]
     Active Substance: FLUCONAZOLE
     Indication: Candida infection
     Dosage: INITIAL DOSE
     Route: 065
  2. FLUCONAZOLE [Suspect]
     Active Substance: FLUCONAZOLE
     Dosage: MAINTENANCE DOSE
     Route: 065

REACTIONS (5)
  - Cardiotoxicity [Unknown]
  - Hyperkalaemia [Recovered/Resolved]
  - Atrioventricular block first degree [Unknown]
  - Blood lactic acid increased [Recovered/Resolved]
  - Electrocardiogram QT prolonged [Unknown]
